FAERS Safety Report 4734460-3 (Version None)
Quarter: 2005Q3

REPORT INFORMATION
  Report Type: 
  Country: None (occurrence: None)
  Receive Date: 20050804
  Receipt Date: 20050725
  Transmission Date: 20060218
  Serious: Yes (Hospitalization)
  Sender: FDA-Public Use
  Company Number: 200515972US

PATIENT
  Sex: 0

DRUGS (3)
  1. LANTUS [Suspect]
     Indication: DIABETES MELLITUS
     Dosage: DOSE UNIT: UNITS
     Route: 058
     Dates: start: 20050721
  2. HUMALOG [Concomitant]
     Dosage: DOSE: 5-10; DOSE UNIT: UNITS
  3. HUMULIN N [Concomitant]
     Dosage: DOSE UNIT: UNITS
     Route: 058

REACTIONS (2)
  - INCORRECT DOSE ADMINISTERED [None]
  - LOSS OF CONSCIOUSNESS [None]
